FAERS Safety Report 11833315 (Version 1)
Quarter: 2015Q4

REPORT INFORMATION
  Report Type: Spontaneous
  Country: CA (occurrence: CA)
  Receive Date: 20151214
  Receipt Date: 20151214
  Transmission Date: 20160305
  Serious: Yes (Other)
  Sender: FDA-Public Use
  Company Number: CA-TEVA-617742ACC

PATIENT
  Age: 87 Year
  Sex: Male

DRUGS (1)
  1. LEVODOPA-CARBIDOPA [Suspect]
     Active Substance: CARBIDOPA\LEVODOPA
     Indication: PRODUCT USED FOR UNKNOWN INDICATION
     Dosage: 300 MILLIGRAM DAILY;
     Route: 065

REACTIONS (6)
  - Confusional state [Unknown]
  - Presyncope [Unknown]
  - Hypotension [Unknown]
  - Fall [Unknown]
  - Fatigue [Unknown]
  - Vertigo [Unknown]
